FAERS Safety Report 12771931 (Version 4)
Quarter: 2019Q4

REPORT INFORMATION
  Report Type: Spontaneous
  Country: US (occurrence: US)
  Receive Date: 20160922
  Receipt Date: 20191002
  Transmission Date: 20200122
  Serious: Yes (Other)
  Sender: FDA-Public Use
  Company Number: US-ALLERGAN-1667170US

PATIENT
  Sex: Female
  Weight: 45.35 kg

DRUGS (3)
  1. LATISSE [Suspect]
     Active Substance: BIMATOPROST
     Dosage: 1 APP, QD
     Route: 061
     Dates: start: 2009
  2. LATISSE [Suspect]
     Active Substance: BIMATOPROST
     Indication: GROWTH OF EYELASHES
     Dosage: UNK UNK, QD
     Route: 061
     Dates: end: 20190826
  3. NEXIUM [Concomitant]
     Active Substance: ESOMEPRAZOLE MAGNESIUM
     Indication: GASTROOESOPHAGEAL REFLUX DISEASE
     Dosage: 40 MG, QD

REACTIONS (7)
  - Hypersensitivity [Not Recovered/Not Resolved]
  - Therapy cessation [Unknown]
  - Product packaging issue [Unknown]
  - Arthropathy [Unknown]
  - Drug ineffective [Unknown]
  - Eyelash changes [Not Recovered/Not Resolved]
  - Limb operation [Recovered/Resolved]

NARRATIVE: CASE EVENT DATE: 201601
